FAERS Safety Report 24247918 (Version 1)
Quarter: 2024Q3

REPORT INFORMATION
  Report Type: Spontaneous
  Country: US (occurrence: US)
  Receive Date: 20240826
  Receipt Date: 20240826
  Transmission Date: 20241017
  Serious: No
  Sender: Haleon PLC
  Company Number: US-HALEON-2193563

PATIENT

DRUGS (1)
  1. NICODERM CQ [Suspect]
     Active Substance: NICOTINE
     Indication: Nicotine dependence
     Route: 061

REACTIONS (5)
  - Application site irritation [Unknown]
  - Application site erythema [Unknown]
  - Restlessness [Unknown]
  - Initial insomnia [Unknown]
  - Application site pruritus [Unknown]
